FAERS Safety Report 22321437 (Version 2)
Quarter: 2023Q2

REPORT INFORMATION
  Report Type: Spontaneous
  Country: BR (occurrence: BR)
  Receive Date: 20230515
  Receipt Date: 20230601
  Transmission Date: 20230722
  Serious: Yes (Other)
  Sender: FDA-Public Use
  Company Number: BR-009507513-2305BRA004161

PATIENT
  Age: 39 Year
  Sex: Female

DRUGS (4)
  1. KEYTRUDA [Suspect]
     Active Substance: PEMBROLIZUMAB
     Indication: Cervix cancer metastatic
     Dosage: FIRST CYCLE
     Route: 042
     Dates: start: 20230417, end: 20230417
  2. KEYTRUDA [Suspect]
     Active Substance: PEMBROLIZUMAB
     Dosage: SECOND CYCLE
     Route: 042
     Dates: start: 20230508
  3. PACLITAXEL [Suspect]
     Active Substance: PACLITAXEL
     Indication: Cervix cancer metastatic
  4. CARBOPLATIN [Suspect]
     Active Substance: CARBOPLATIN
     Indication: Cervix cancer metastatic

REACTIONS (4)
  - Anaphylactic shock [Unknown]
  - Anaphylactic shock [Unknown]
  - Depressed level of consciousness [Unknown]
  - Depressed level of consciousness [Unknown]

NARRATIVE: CASE EVENT DATE: 20230417
